FAERS Safety Report 11993482 (Version 7)
Quarter: 2016Q2

REPORT INFORMATION
  Report Type: Report from Study
  Country: US (occurrence: US)
  Receive Date: 20160203
  Receipt Date: 20160513
  Transmission Date: 20160815
  Serious: No
  Sender: FDA-Public Use
  Company Number: PHEH2016US001062

PATIENT
  Age: 41 Year
  Sex: Male

DRUGS (1)
  1. COSENTYX [Suspect]
     Active Substance: SECUKINUMAB
     Indication: PSORIASIS
     Dosage: 300 MG, QMO
     Route: 058
     Dates: start: 201508

REACTIONS (8)
  - Atypical pneumonia [Unknown]
  - Bronchitis [Unknown]
  - Accidental exposure to product [Unknown]
  - Psoriasis [Unknown]
  - Device malfunction [Recovered/Resolved]
  - Drug dispensing error [Unknown]
  - Decreased immune responsiveness [Unknown]
  - Incorrect dose administered [Unknown]

NARRATIVE: CASE EVENT DATE: 201512
